FAERS Safety Report 20354533 (Version 1)
Quarter: 2022Q1

REPORT INFORMATION
  Report Type: Spontaneous
  Country: US (occurrence: US)
  Receive Date: 20220120
  Receipt Date: 20220120
  Transmission Date: 20220423
  Serious: Yes (Death, Hospitalization, Other)
  Sender: FDA-Public Use
  Company Number: US-LUPIN PHARMACEUTICALS INC.-2022-00408

PATIENT
  Age: 56 Year
  Sex: Male

DRUGS (10)
  1. METHYLPREDNISOLONE [Suspect]
     Active Substance: METHYLPREDNISOLONE
     Indication: Premedication
     Dosage: 100 MILLIGRAM
     Route: 065
     Dates: start: 2021
  2. PREDNISONE [Suspect]
     Active Substance: PREDNISONE
     Indication: Polyarteritis nodosa
     Dosage: 20-30MG
     Route: 065
  3. PREDNISONE [Suspect]
     Active Substance: PREDNISONE
     Dosage: 50 MILLIGRAM, QD
     Route: 065
     Dates: start: 2020, end: 2021
  4. DEXAMETHASONE [Suspect]
     Active Substance: DEXAMETHASONE
     Indication: Haemophagocytic lymphohistiocytosis
     Dosage: 10 MILLIGRAM/SQ. METER, QD
     Route: 065
     Dates: start: 2021
  5. RUXOLITINIB [Suspect]
     Active Substance: RUXOLITINIB
     Indication: Haemophagocytic lymphohistiocytosis
     Dosage: 15 MILLIGRAM
     Route: 065
     Dates: start: 2021
  6. RITUXIMAB [Suspect]
     Active Substance: RITUXIMAB
     Indication: Haemophagocytic lymphohistiocytosis
     Dosage: 375 MILLIGRAM/SQ. METER
     Route: 065
     Dates: start: 2021
  7. METHOTREXATE [Concomitant]
     Active Substance: METHOTREXATE
     Indication: Polyarteritis nodosa
     Dosage: UNK
     Route: 048
     Dates: start: 2020
  8. INFLIXIMAB [Concomitant]
     Active Substance: INFLIXIMAB
     Indication: Polyarteritis nodosa
     Dosage: 5 MILLIGRAM/KILOGRAM
     Route: 065
     Dates: start: 2020
  9. ANAKINRA [Concomitant]
     Active Substance: ANAKINRA
     Indication: Haemophagocytic lymphohistiocytosis
     Dosage: 4.5 MILLIGRAM/KILOGRAM, QD
     Route: 065
     Dates: start: 2021, end: 2021
  10. AMPICILLIN [Concomitant]
     Active Substance: AMPICILLIN
     Indication: Antibiotic therapy
     Dosage: UNK
     Route: 065
     Dates: start: 2021

REACTIONS (4)
  - Pseudomonas infection [Fatal]
  - Pseudomonal bacteraemia [Fatal]
  - Pseudomonal sepsis [Fatal]
  - Septic shock [Fatal]

NARRATIVE: CASE EVENT DATE: 20210101
